FAERS Safety Report 5790099-2 (Version None)
Quarter: 2008Q2

REPORT INFORMATION
  Report Type: 
  Country: None (occurrence: None)
  Receive Date: 20080626
  Receipt Date: 20080215
  Transmission Date: 20081010
  Serious: No
  Sender: FDA-Public Use
  Company Number: A0674488A

PATIENT
  Age: 49 Year
  Sex: Female
  Weight: 82.3 kg

DRUGS (1)
  1. ALLI [Suspect]

REACTIONS (4)
  - APATHY [None]
  - HORMONE LEVEL ABNORMAL [None]
  - MENORRHAGIA [None]
  - MENSTRUATION IRREGULAR [None]
